FAERS Safety Report 7669137-8 (Version None)
Quarter: 2011Q3

REPORT INFORMATION
  Report Type: 
  Country: None (occurrence: None)
  Receive Date: 20110808
  Receipt Date: 20110725
  Transmission Date: 20111222
  Serious: Yes (Hospitalization)
  Sender: FDA-Public Use
  Company Number: PHHY2011CA67440

PATIENT

DRUGS (1)
  1. ALISKIREN [Suspect]
     Dosage: UNK UKN, UNK

REACTIONS (1)
  - PERIPHERAL ISCHAEMIA [None]
